FAERS Safety Report 8438757-5 (Version None)
Quarter: 2012Q2

REPORT INFORMATION
  Report Type: 
  Country: None (occurrence: None)
  Receive Date: 20120615
  Receipt Date: 20120613
  Transmission Date: 20120825
  Serious: Yes (Other)
  Sender: FDA-Public Use
  Company Number: US-BAYER-2012-058718

PATIENT
  Sex: Male

DRUGS (2)
  1. MAGNEVIST [Suspect]
     Indication: NUCLEAR MAGNETIC RESONANCE IMAGING
  2. MAGNEVIST [Suspect]
     Indication: VERTIGO

REACTIONS (3)
  - RESPIRATORY DISTRESS [None]
  - SNEEZING [None]
  - CYANOSIS [None]
